FAERS Safety Report 6247398-X (Version None)
Quarter: 2009Q2

REPORT INFORMATION
  Report Type: 
  Country: None (occurrence: None)
  Receive Date: 20090626
  Receipt Date: 20090615
  Transmission Date: 20091009
  Serious: Yes (Hospitalization, Other)
  Sender: FDA-Public Use
  Company Number: GR-PFIZER INC-2009215639

PATIENT

DRUGS (2)
  1. AROMASIN [Suspect]
     Indication: BREAST CANCER
     Dosage: 25 MG, 1X/DAY
     Route: 048
  2. TRASTUZUMAB [Suspect]
     Indication: BREAST CANCER
     Dosage: UNK

REACTIONS (1)
  - THROMBOCYTOPENIA [None]
